FAERS Safety Report 14763550 (Version 2)
Quarter: 2019Q1

REPORT INFORMATION
  Report Type: Spontaneous
  Country: US (occurrence: US)
  Receive Date: 20180416
  Receipt Date: 20190327
  Transmission Date: 20190417
  Serious: No
  Sender: FDA-Public Use
  Company Number: US-MYLANLABS-2018M1018694

PATIENT
  Sex: Female
  Weight: 100 kg

DRUGS (1)
  1. FENTANYL TRANSDERMAL SYSTEM [Suspect]
     Active Substance: FENTANYL
     Indication: PAIN
     Dosage: UNK
     Route: 062

REACTIONS (4)
  - Hyperhidrosis [Recovering/Resolving]
  - Product adhesion issue [Unknown]
  - Wrong technique in product usage process [Recovered/Resolved]
  - Tremor [Recovering/Resolving]
